FAERS Safety Report 22298140 (Version 3)
Quarter: 2023Q2

REPORT INFORMATION
  Report Type: Other
  Country: DE (occurrence: DE)
  Receive Date: 20230509
  Receipt Date: 20230530
  Transmission Date: 20230721
  Serious: Yes (Death, Hospitalization)
  Sender: FDA-Public Use
  Company Number: DE-ROCHE-3344721

PATIENT
  Age: 60 Year
  Sex: Female
  Weight: 72.5 kg

DRUGS (31)
  1. LEUCOVORIN [Suspect]
     Active Substance: LEUCOVORIN
     Indication: Neoplasm malignant
     Dosage: DATE OF MOST RECENT DOSE PRIOR TO AE/SAE ONSET: 01/FEB/2023
     Route: 042
     Dates: start: 20221102, end: 20230201
  2. BEVACIZUMAB [Suspect]
     Active Substance: BEVACIZUMAB
     Indication: Neoplasm malignant
     Dosage: DATE OF MOST RECENT DOSE PRIOR TO AE/SAE ONSET: 01/FEB/2023
     Route: 042
     Dates: start: 20221102, end: 20230201
  3. IRINOTECAN [Suspect]
     Active Substance: IRINOTECAN
     Indication: Neoplasm malignant
     Dosage: DOSE OF LAST ADMINISTERED PRIOR TO AE/SAE ONSET: 187 MG?DATE OF MOST RECENT DOSE PRIOR TO AE/SAE ONS
     Route: 042
     Dates: start: 20221102, end: 20230201
  4. FLUOROURACIL [Suspect]
     Active Substance: FLUOROURACIL
     Indication: Neoplasm malignant
     Dosage: DATE OF MOST RECENT DOSE OF PRIOR TO AE/SAE ONSET: 01/02/2023
     Route: 042
     Dates: start: 20221102, end: 20230201
  5. CHOLECALCIFEROL [Concomitant]
     Active Substance: CHOLECALCIFEROL
  6. FUROSEMIDE [Concomitant]
     Active Substance: FUROSEMIDE
  7. ATORVASTATIN [Concomitant]
     Active Substance: ATORVASTATIN
  8. CANDESARTAN [Concomitant]
     Active Substance: CANDESARTAN
  9. LERCANIDIPINE [Concomitant]
     Active Substance: LERCANIDIPINE
  10. CITALOPRAM [Concomitant]
     Active Substance: CITALOPRAM HYDROBROMIDE
  11. FERROUS SULFATE [Concomitant]
     Active Substance: FERROUS SULFATE
  12. METAMIZOLE [Concomitant]
     Active Substance: METAMIZOLE
  13. METOCLOPRAMIDE [Concomitant]
     Active Substance: METOCLOPRAMIDE
  14. ONDANSETRON [Concomitant]
     Active Substance: ONDANSETRON
  15. LOPERAMIDE [Concomitant]
     Active Substance: LOPERAMIDE
  16. PANTOPRAZOLE SODIUM [Concomitant]
     Active Substance: PANTOPRAZOLE SODIUM
  17. ELIQUIS [Concomitant]
     Active Substance: APIXABAN
  18. SPIRONOLACTONE [Concomitant]
     Active Substance: SPIRONOLACTONE
     Dates: start: 20221223, end: 20230317
  19. LANTUS [Concomitant]
     Active Substance: INSULIN GLARGINE
     Indication: Diabetes mellitus
     Dosage: 100IE PEN
     Dates: end: 20230317
  20. PROTAPHANE [Concomitant]
     Active Substance: INSULIN HUMAN
     Indication: Diabetes mellitus
     Dosage: 100IE
     Dates: start: 20230315
  21. POTASSIUM [Concomitant]
     Active Substance: POTASSIUM
     Indication: Blood potassium increased
     Dosage: 20MMOL
     Dates: start: 20230213, end: 20230214
  22. AMPHOTERICIN B [Concomitant]
     Active Substance: AMPHOTERICIN B
     Dates: start: 20230214
  23. ALBUMIN HUMAN [Concomitant]
     Active Substance: ALBUMIN HUMAN
     Route: 042
     Dates: start: 20230217, end: 20230310
  24. OLIMEL E [Concomitant]
     Active Substance: AMINO ACIDS\DEXTROSE\ELECTROLYTES NOS\SOYBEAN OIL
     Dates: start: 20230210, end: 20230317
  25. DIMENHYDRINATE [Concomitant]
     Active Substance: DIMENHYDRINATE
     Indication: Nausea
     Dosage: 6.2 MG/ML
     Dates: start: 20230304, end: 20230316
  26. HEPARIN SODIUM [Concomitant]
     Active Substance: HEPARIN SODIUM
     Dosage: 5000IE
     Dates: start: 20230210, end: 20230317
  27. MORPHINE [Concomitant]
     Active Substance: MORPHINE
     Indication: Pain
     Dates: start: 20230314, end: 20230317
  28. FENTANYL [Concomitant]
     Active Substance: FENTANYL
     Indication: Pain
     Dates: start: 20230306, end: 20230312
  29. FENTANYL CITRATE [Concomitant]
     Active Substance: FENTANYL CITRATE
     Indication: Pain
     Dates: start: 20230306, end: 20230317
  30. OXYCODONE [Concomitant]
     Active Substance: OXYCODONE
     Indication: Pain
     Dates: start: 20230304, end: 20230308
  31. NALOXONE [Concomitant]
     Active Substance: NALOXONE
     Indication: Pain
     Dates: start: 20230304, end: 20230307

REACTIONS (1)
  - Sepsis [Fatal]

NARRATIVE: CASE EVENT DATE: 20230210
